FAERS Safety Report 5871750-5 (Version None)
Quarter: 2008Q3

REPORT INFORMATION
  Report Type: 
  Country: None (occurrence: None)
  Receive Date: 20080904
  Receipt Date: 20080904
  Transmission Date: 20090109
  Serious: No
  Sender: FDA-Public Use
  Company Number: None

PATIENT
  Age: 42 Year
  Sex: Male
  Weight: 68.9467 kg

DRUGS (2)
  1. LEXAPRO [Suspect]
     Indication: ANXIETY
     Dosage: 10 MG PER DAY PO
     Route: 048
  2. LEXAPRO [Suspect]
     Indication: DEPRESSION
     Dosage: 10 MG PER DAY PO
     Route: 048

REACTIONS (25)
  - BACK DISORDER [None]
  - BLEPHAROSPASM [None]
  - BLOOD PRESSURE INCREASED [None]
  - BURNING SENSATION [None]
  - CHEST PAIN [None]
  - CONDITION AGGRAVATED [None]
  - DEPRESSION [None]
  - DISTURBANCE IN ATTENTION [None]
  - DIZZINESS [None]
  - DRY SKIN [None]
  - EAR DISCOMFORT [None]
  - EYELID DISORDER [None]
  - EYELID OEDEMA [None]
  - FEELING ABNORMAL [None]
  - HAEMANGIOMA [None]
  - HEADACHE [None]
  - LOCAL SWELLING [None]
  - MEMORY IMPAIRMENT [None]
  - MUSCULOSKELETAL STIFFNESS [None]
  - NERVOUSNESS [None]
  - PENIS DISORDER [None]
  - SKIN CHAPPED [None]
  - SPEECH DISORDER [None]
  - TESTICULAR DISORDER [None]
  - VASODILATATION [None]
